FAERS Safety Report 12001628 (Version 1)
Quarter: 2016Q1

REPORT INFORMATION
  Report Type: Spontaneous
  Country: US (occurrence: US)
  Receive Date: 20160204
  Receipt Date: 20160204
  Transmission Date: 20160526
  Serious: No
  Sender: FDA-Public Use
  Company Number: US-PERRIGO-15US003852

PATIENT
  Age: 55 Year
  Sex: Female
  Weight: 45.35 kg

DRUGS (5)
  1. IBUPROFEN. [Suspect]
     Active Substance: IBUPROFEN
     Indication: PAIN
     Dosage: 400 MG, BID, PRN
     Route: 048
     Dates: start: 201504
  2. OXYCONTIN [Concomitant]
     Active Substance: OXYCODONE HYDROCHLORIDE
     Indication: ARTHRALGIA
     Dosage: UNK
     Route: 065
  3. OXYCODONE [Concomitant]
     Active Substance: OXYCODONE
     Indication: ARTHRALGIA
     Dosage: UNK
     Route: 065
  4. OXYCONTIN [Concomitant]
     Active Substance: OXYCODONE HYDROCHLORIDE
     Indication: MYOTONIC DYSTROPHY
  5. OXYCODONE [Concomitant]
     Active Substance: OXYCODONE
     Indication: MYOTONIC DYSTROPHY

REACTIONS (2)
  - Throat irritation [Unknown]
  - Glossodynia [Unknown]

NARRATIVE: CASE EVENT DATE: 201504
